FAERS Safety Report 6029374-5 (Version None)
Quarter: 2009Q1

REPORT INFORMATION
  Report Type: 
  Country: None (occurrence: None)
  Receive Date: 20090105
  Receipt Date: 20081226
  Transmission Date: 20090719
  Serious: Yes (Life-Threatening, Hospitalization)
  Sender: FDA-Public Use
  Company Number: 2008US003447

PATIENT
  Age: 81 Year
  Sex: Female

DRUGS (17)
  1. AMBISOME [Suspect]
     Indication: PNEUMONIA FUNGAL
     Dosage: 2 G, IV NOS
     Route: 042
     Dates: start: 20081105, end: 20081126
  2. PIPERACILLIN SODIUM AND TAZOBACTAM SODIUM [Concomitant]
  3. MOBENZOCIN (CEFTAZIDIME) [Concomitant]
  4. MINOCYCLINE HCL [Concomitant]
  5. CEFTAZIDIME [Concomitant]
  6. STEROID SEMI PULSE THERAPY [Concomitant]
  7. NAMIMYCIN (MINOCYCLINE HYDROCHLORIDE) [Concomitant]
  8. GASTER [Concomitant]
  9. REMINARON (GABEXATE MESILATE) [Concomitant]
  10. BENAMBAX (PENTAMIDINE ISETHIONATE) [Concomitant]
  11. PLATELETS, CONCENTRATED (PLATELETS, CONCENTRATED) [Concomitant]
  12. METHYLPREDNISOLONE [Concomitant]
  13. DORIBAX [Concomitant]
  14. HUMAN SERUM ALBUMIN (ALBUMIN) [Concomitant]
  15. TOBRACIN (TOBRAMYCIN) [Concomitant]
  16. MEROPEN (MEROPENEM TRIHYDRATE) [Concomitant]
  17. PREDONINE (PREDNISOLONE ACETATE) [Concomitant]

REACTIONS (6)
  - CONDITION AGGRAVATED [None]
  - DISSEMINATED INTRAVASCULAR COAGULATION [None]
  - MULTI-ORGAN FAILURE [None]
  - NO THERAPEUTIC RESPONSE [None]
  - PNEUMONIA [None]
  - RENAL FAILURE ACUTE [None]
